FAERS Safety Report 9256747 (Version 1)
Quarter: 2013Q2

REPORT INFORMATION
  Report Type: Spontaneous
  Country: IL (occurrence: IL)
  Receive Date: 20130426
  Receipt Date: 20130426
  Transmission Date: 20140414
  Serious: Yes (Life-Threatening)
  Sender: FDA-Public Use
  Company Number: IL-009507513-1304ISR015147

PATIENT
  Age: 37 Year
  Sex: Female

DRUGS (2)
  1. PUREGON [Suspect]
     Dosage: UNK
     Route: 058
     Dates: start: 20130424, end: 20130424
  2. PUREGON [Suspect]
     Dosage: 50 UNITS, UNK
     Route: 058
     Dates: start: 20130425

REACTIONS (4)
  - Abdominal distension [Unknown]
  - Diarrhoea [Unknown]
  - Fatigue [Unknown]
  - Overdose [Unknown]
